FAERS Safety Report 23338586 (Version 6)
Quarter: 2024Q2

REPORT INFORMATION
  Report Type: Report from Study
  Country: CA (occurrence: CA)
  Receive Date: 20231226
  Receipt Date: 20240618
  Transmission Date: 20240716
  Serious: Yes (Other)
  Sender: FDA-Public Use
  Company Number: CA-JNJFOC-20231234830

PATIENT
  Age: 64 Year
  Sex: Male
  Weight: 69 kg

DRUGS (6)
  1. SIMPONI [Suspect]
     Active Substance: GOLIMUMAB
     Indication: Psoriatic arthropathy
     Route: 041
     Dates: start: 20230117
  2. SIMPONI [Suspect]
     Active Substance: GOLIMUMAB
     Route: 041
  3. SIMPONI [Suspect]
     Active Substance: GOLIMUMAB
     Route: 041
     Dates: start: 20231030
  4. SIMPONI [Suspect]
     Active Substance: GOLIMUMAB
     Route: 041
  5. SIMPONI [Suspect]
     Active Substance: GOLIMUMAB
     Route: 041
  6. SIMPONI [Suspect]
     Active Substance: GOLIMUMAB
     Route: 041
     Dates: end: 20240613

REACTIONS (9)
  - Throat cancer [Unknown]
  - Lung neoplasm [Unknown]
  - Pulmonary fibrosis [Not Recovered/Not Resolved]
  - Psoriatic arthropathy [Recovering/Resolving]
  - Fungal infection [Not Recovered/Not Resolved]
  - Influenza like illness [Not Recovered/Not Resolved]
  - Bronchitis [Not Recovered/Not Resolved]
  - Off label use [Unknown]
  - Inappropriate schedule of product administration [Unknown]

NARRATIVE: CASE EVENT DATE: 20231101
